FAERS Safety Report 17888609 (Version 1)
Quarter: 2020Q2

REPORT INFORMATION
  Report Type: Spontaneous
  Country: US (occurrence: US)
  Receive Date: 20200611
  Receipt Date: 20200611
  Transmission Date: 20200714
  Serious: Yes (Other)
  Sender: FDA-Public Use
  Company Number: None

PATIENT
  Age: 62 Year
  Sex: Female
  Weight: 60.75 kg

DRUGS (4)
  1. IRON [Concomitant]
     Active Substance: IRON
  2. VITAMIN C [Concomitant]
     Active Substance: ASCORBIC ACID
  3. DULERA [Suspect]
     Active Substance: FORMOTEROL FUMARATE DIHYDRATE\MOMETASONE FUROATE
     Indication: ASTHMA
     Dosage: ?          OTHER STRENGTH:120 METERED DOSES;QUANTITY:2 PUFF(S);?
     Route: 055
     Dates: start: 20200306, end: 20200312
  4. VIT D [Concomitant]
     Active Substance: VITAMIN D NOS

REACTIONS (2)
  - Rosacea [None]
  - Aphonia [None]

NARRATIVE: CASE EVENT DATE: 20200315
